FAERS Safety Report 12052950 (Version 2)
Quarter: 2016Q1

REPORT INFORMATION
  Report Type: Spontaneous
  Country: CN (occurrence: CN)
  Receive Date: 20160209
  Receipt Date: 20160217
  Transmission Date: 20160526
  Serious: Yes (Hospitalization)
  Sender: FDA-Public Use
  Company Number: PHHY2016CN014541

PATIENT
  Age: 18 Year
  Sex: Female

DRUGS (2)
  1. TRILEPTAL [Suspect]
     Active Substance: OXCARBAZEPINE
     Dosage: 300 MG, BID
     Route: 048
  2. TRILEPTAL [Suspect]
     Active Substance: OXCARBAZEPINE
     Indication: PARTIAL SEIZURES
     Dosage: 150 MG, BID
     Route: 048

REACTIONS (9)
  - Rash generalised [Unknown]
  - Blister [Unknown]
  - Emotional disorder [Unknown]
  - Abnormal behaviour [Unknown]
  - Oedema [Unknown]
  - Eating disorder [Unknown]
  - Eye ulcer [Unknown]
  - Stevens-Johnson syndrome [Unknown]
  - Mouth ulceration [Unknown]
